FAERS Safety Report 7068809-6 (Version None)
Quarter: 2010Q4

REPORT INFORMATION
  Report Type: 
  Country: None (occurrence: None)
  Receive Date: 20101028
  Receipt Date: 20101025
  Transmission Date: 20110411
  Serious: Yes (Life-Threatening, Hospitalization)
  Sender: FDA-Public Use
  Company Number: ES-MERCK-1010ESP00022

PATIENT
  Age: 81 Year
  Sex: Male
  Weight: 81 kg

DRUGS (2)
  1. JANUMET [Suspect]
     Indication: DIABETES MELLITUS
     Route: 048
     Dates: start: 20100520, end: 20100803
  2. REPAGLINIDE [Suspect]
     Indication: DIABETES MELLITUS
     Route: 048
     Dates: start: 20100520, end: 20100803

REACTIONS (1)
  - ACUTE MYOCARDIAL INFARCTION [None]
